FAERS Safety Report 6304102-4 (Version None)
Quarter: 2009Q3

REPORT INFORMATION
  Report Type: 
  Country: None (occurrence: None)
  Receive Date: 20090806
  Receipt Date: 20090729
  Transmission Date: 20100115
  Serious: Yes (Disabling)
  Sender: FDA-Public Use
  Company Number: 340317

PATIENT
  Sex: Male

DRUGS (1)
  1. BUPIVACAINE HCL [Suspect]
     Indication: ANALGESIA
     Dosage: CONTINUOUS, UNKNOWN, INJECTION
     Dates: start: 20040101

REACTIONS (2)
  - INJURY [None]
  - MUSCULOSKELETAL PAIN [None]
